FAERS Safety Report 12723934 (Version 1)
Quarter: 2016Q3

REPORT INFORMATION
  Report Type: Spontaneous
  Country: US (occurrence: US)
  Receive Date: 20160908
  Receipt Date: 20160908
  Transmission Date: 20161109
  Serious: Yes (Other)
  Sender: FDA-Public Use
  Company Number: US-JNJFOC-20160904255

PATIENT
  Sex: Female

DRUGS (1)
  1. REMICADE [Suspect]
     Active Substance: INFLIXIMAB
     Indication: RHEUMATOID ARTHRITIS
     Route: 042
     Dates: end: 2016

REACTIONS (4)
  - Infusion related reaction [Unknown]
  - Systemic lupus erythematosus [Unknown]
  - Colitis ulcerative [Unknown]
  - Rash [Unknown]

NARRATIVE: CASE EVENT DATE: 2016
